FAERS Safety Report 5832937-0 (Version None)
Quarter: 2008Q3

REPORT INFORMATION
  Report Type: 
  Country: None (occurrence: None)
  Receive Date: 20080730
  Receipt Date: 20080724
  Transmission Date: 20090109
  Serious: Yes (Death)
  Sender: FDA-Public Use
  Company Number: 90077

PATIENT
  Sex: Female
  Weight: 58 kg

DRUGS (8)
  1. NAPROXEN SODIUM [Suspect]
     Indication: OSTEOARTHRITIS
     Dosage: 220 MG/ ORAL
     Route: 047
     Dates: end: 20061210
  2. ADCAL-D3 [Concomitant]
  3. CO-CODAMOL [Concomitant]
  4. FRUSEMIDE [Concomitant]
  5. ISOSORBIDE MONONITRATE [Concomitant]
  6. PERINDOPRIL ERBUMINE [Concomitant]
  7. RISPERIDONE [Concomitant]
  8. ZOPICLONE [Concomitant]

REACTIONS (2)
  - SEPSIS [None]
  - UPPER GASTROINTESTINAL HAEMORRHAGE [None]
